FAERS Safety Report 17566878 (Version 1)
Quarter: 2020Q1

REPORT INFORMATION
  Report Type: Spontaneous
  Country: FR (occurrence: FR)
  Receive Date: 20200320
  Receipt Date: 20200320
  Transmission Date: 20200409
  Serious: Yes (Other)
  Sender: FDA-Public Use
  Company Number: FR-TEVA-2020-FR-1205404

PATIENT
  Sex: Male

DRUGS (3)
  1. TANGANIL [Concomitant]
     Active Substance: ACETYLLEUCINE
  2. OCTREOTIDE TEVA LP 30 MG [Suspect]
     Active Substance: OCTREOTIDE
     Indication: PRODUCT USED FOR UNKNOWN INDICATION
  3. DOLIPRANE [Concomitant]
     Active Substance: ACETAMINOPHEN

REACTIONS (6)
  - Haematoma [Unknown]
  - Monoplegia [Recovered/Resolved]
  - Pain in extremity [Not Recovered/Not Resolved]
  - Swelling [Unknown]
  - Hypoaesthesia [Unknown]
  - Adverse event [Unknown]
